FAERS Safety Report 5367370-1 (Version None)
Quarter: 2007Q2

REPORT INFORMATION
  Report Type: 
  Country: None (occurrence: None)
  Receive Date: 20070622
  Receipt Date: 20060822
  Transmission Date: 20071010
  Serious: Yes (Other)
  Sender: FDA-Public Use
  Company Number: US-ASTRAZENECA-2006UW16701

PATIENT
  Age: 10 Month
  Sex: Male

DRUGS (2)
  1. PULMICORT RESPULES [Suspect]
     Indication: BRONCHITIS
     Route: 055
  2. CLARITHROMYCIN [Concomitant]

REACTIONS (2)
  - RASH GENERALISED [None]
  - VOMITING [None]
